FAERS Safety Report 6235322-5 (Version None)
Quarter: 2009Q2

REPORT INFORMATION
  Report Type: 
  Country: None (occurrence: None)
  Receive Date: 20090618
  Receipt Date: 20090602
  Transmission Date: 20091009
  Serious: No
  Sender: FDA-Public Use
  Company Number: JP-ASTRAZENECA-2009AP01872

PATIENT
  Sex: Female

DRUGS (1)
  1. MEROPEN [Suspect]
     Indication: PNEUMONIA
     Route: 042

REACTIONS (1)
  - LIVER FUNCTION TEST ABNORMAL [None]
